FAERS Safety Report 12082618 (Version 1)
Quarter: 2016Q1

REPORT INFORMATION
  Report Type: Spontaneous
  Country: CN (occurrence: CN)
  Receive Date: 20160217
  Receipt Date: 20160217
  Transmission Date: 20160526
  Serious: Yes (Death, Hospitalization)
  Sender: FDA-Public Use
  Company Number: CN-ROCHE-1711974

PATIENT
  Age: 43 Year
  Sex: Male
  Weight: 50 kg

DRUGS (1)
  1. XELODA [Suspect]
     Active Substance: CAPECITABINE
     Indication: PRODUCT USED FOR UNKNOWN INDICATION
     Dosage: DATE OF LAST DOSE PRIOR TO SAE: 12/MAR/2014
     Route: 048
     Dates: start: 20140226

REACTIONS (1)
  - Ileus [Fatal]

NARRATIVE: CASE EVENT DATE: 20140610
